FAERS Safety Report 8619508 (Version 4)
Quarter: 2015Q2

REPORT INFORMATION
  Report Type: Spontaneous
  Country: JP (occurrence: JP)
  Receive Date: 20120618
  Receipt Date: 20150410
  Transmission Date: 20150821
  Serious: Yes (Hospitalization)
  Sender: FDA-Public Use
  Company Number: JP-ASTRAZENECA-2012SE38831

PATIENT
  Age: 53 Year
  Sex: Female
  Weight: 54 kg

DRUGS (13)
  1. PENTASA [Suspect]
     Active Substance: MESALAMINE
     Indication: CROHN^S DISEASE
     Route: 048
     Dates: start: 20110823
  2. WARFARIN [Suspect]
     Active Substance: WARFARIN
     Indication: ANTIPHOSPHOLIPID SYNDROME
     Route: 048
     Dates: start: 20110823
  3. ALBUMIN TANNATE [Suspect]
     Active Substance: ALBUMIN BOVINE\TANNIC ACID
     Indication: SHORT-BOWEL SYNDROME
     Route: 048
     Dates: start: 20110823
  4. INFLIXIMAB(GENETICAL RECOMBINATION) [Concomitant]
     Dosage: 10 MG/KG
     Route: 065
  5. LOPEMIN [Suspect]
     Active Substance: LOPERAMIDE HYDROCHLORIDE
     Indication: SHORT-BOWEL SYNDROME
     Route: 048
     Dates: start: 20110823
  6. ADSORBIN [Suspect]
     Active Substance: ALUMINUM SILICATE
     Indication: SHORT-BOWEL SYNDROME
     Route: 048
     Dates: start: 20110823
  7. THYRADIN S [Suspect]
     Active Substance: LEVOTHYROXINE SODIUM
     Indication: HYPOTHYROIDISM
     Route: 048
     Dates: start: 20110823
  8. POLYFUL [Suspect]
     Active Substance: CALCIUM POLYCARBOPHIL
     Indication: SHORT-BOWEL SYNDROME
     Route: 048
     Dates: start: 20110823
  9. BERIZYM [Suspect]
     Active Substance: CELLULASE\DIASTASE\LIPASE
     Indication: SHORT-BOWEL SYNDROME
     Route: 048
     Dates: start: 20110823
  10. LAC-B [Suspect]
     Active Substance: BIFIDOBACTERIUM SPP.
     Indication: SHORT-BOWEL SYNDROME
     Route: 048
     Dates: start: 20110823
  11. NEXIUM [Suspect]
     Active Substance: ESOMEPRAZOLE MAGNESIUM
     Route: 048
     Dates: start: 20120213, end: 20120501
  12. ELENTAL-P [Suspect]
     Active Substance: AMINO ACIDS\CARBOHYDRATES\MINERALS\SOYBEAN OIL\VITAMINS
     Indication: CROHN^S DISEASE
     Route: 048
     Dates: start: 20110823
  13. THYROID AND PARA-THYROID HORMONE PREPARATIONS [Concomitant]
     Dosage: 20MG
     Route: 065
     Dates: end: 20120430

REACTIONS (2)
  - Hypocalcaemia [Recovered/Resolved]
  - Hypomagnesaemia [Recovered/Resolved]

NARRATIVE: CASE EVENT DATE: 20120409
